FAERS Safety Report 22210667 (Version 2)
Quarter: 2023Q2

REPORT INFORMATION
  Report Type: Spontaneous
  Country: CN (occurrence: CN)
  Receive Date: 20230414
  Receipt Date: 20230425
  Transmission Date: 20230722
  Serious: Yes (Other)
  Sender: FDA-Public Use
  Company Number: CN-TAKEDA-2023TUS037488

PATIENT
  Age: 72 Year
  Sex: Male

DRUGS (2)
  1. COLCHICINE [Suspect]
     Active Substance: COLCHICINE
     Indication: Gouty arthritis
     Dosage: 1 MILLIGRAM, QD
     Route: 048
  2. COLCHICINE [Suspect]
     Active Substance: COLCHICINE
     Dosage: 1 MILLIGRAM, TID
     Route: 048

REACTIONS (3)
  - Rhabdomyolysis [Unknown]
  - Multiple organ dysfunction syndrome [Unknown]
  - Toxicity to various agents [Unknown]
